FAERS Safety Report 20087894 (Version 2)
Quarter: 2021Q4

REPORT INFORMATION
  Report Type: Spontaneous
  Country: JP (occurrence: JP)
  Receive Date: 20211118
  Receipt Date: 20211129
  Transmission Date: 20220303
  Serious: Yes (Hospitalization)
  Sender: FDA-Public Use
  Company Number: JP-TEVA-2021-JP-1978003

PATIENT
  Age: 44 Year
  Sex: Female

DRUGS (13)
  1. OXALIPLATIN [Suspect]
     Active Substance: OXALIPLATIN
     Indication: Rectal cancer
     Dosage: RECEIVED FOUR CYCLES AS POSTOPERATIVE ADJUVANT CHEMOTHERAPY
     Route: 065
  2. OXALIPLATIN [Suspect]
     Active Substance: OXALIPLATIN
     Indication: Adjuvant therapy
     Dosage: RECEIVED TEN CYCLES OF MODIFIED FOLFOX REGIMEN ALONG WITH BEVACIZUMAB
     Route: 042
     Dates: start: 2017
  3. OXALIPLATIN [Suspect]
     Active Substance: OXALIPLATIN
     Indication: Rectal cancer recurrent
  4. IRINOTECAN [Suspect]
     Active Substance: IRINOTECAN
     Indication: Rectal cancer recurrent
     Dosage: RECEIVED NINE CYCLES OF FLUOROURACIL, LEVOFOLINIC-ACID AND IRINOTECAN (FOLFIRI) CHEMOTHERAPY PLUS...
     Route: 065
     Dates: start: 2020
  5. FLUOROURACIL [Suspect]
     Active Substance: FLUOROURACIL
     Indication: Rectal cancer
     Dosage: RECEIVED FOUR CYCLES AS POSTOPERATIVE ADJUVANT CHEMOTHERAPY
     Route: 065
  6. FLUOROURACIL [Suspect]
     Active Substance: FLUOROURACIL
     Indication: Adjuvant therapy
     Dosage: RECEIVED TEN CYCLES OF MODIFIED FOLFOX REGIMEN ALONG WITH BEVACIZUMAB
     Route: 042
     Dates: start: 2017
  7. FLUOROURACIL [Suspect]
     Active Substance: FLUOROURACIL
     Indication: Rectal cancer recurrent
     Dosage: RECEIVED NINE CYCLES OF FLUOROURACIL, LEVOFOLINIC-ACID AND IRINOTECAN (FOLFIRI) CHEMOTHERAPY PLUS...
     Route: 065
     Dates: start: 2020
  8. LEVOLEUCOVORIN CALCIUM [Suspect]
     Active Substance: LEVOLEUCOVORIN CALCIUM
     Indication: Rectal cancer
     Dosage: RECEIVED FOUR CYCLES AS POSTOPERATIVE ADJUVANT CHEMOTHERAPY
     Route: 065
  9. LEVOLEUCOVORIN CALCIUM [Suspect]
     Active Substance: LEVOLEUCOVORIN CALCIUM
     Indication: Adjuvant therapy
     Dosage: RECEIVED TEN CYCLES OF MODIFIED FOLFOX REGIMEN ALONG WITH BEVACIZUMAB
     Route: 042
     Dates: start: 2017
  10. LEVOLEUCOVORIN CALCIUM [Suspect]
     Active Substance: LEVOLEUCOVORIN CALCIUM
     Indication: Rectal cancer recurrent
  11. BEVACIZUMAB [Suspect]
     Active Substance: BEVACIZUMAB
     Indication: Rectal cancer recurrent
     Dosage: RECEIVED TEN CYCLES OF MODIFIED FOLFOX REGIMEN ALONG WITH BEVACIZUMAB
     Route: 041
     Dates: start: 2017
  12. BEVACIZUMAB [Suspect]
     Active Substance: BEVACIZUMAB
     Indication: Rectal cancer recurrent
     Dosage: RECEIVED NINE CYCLES OF FLUOROURACIL, LEVOFOLINIC-ACID AND IRINOTECAN (FOLFIRI) CHEMOTHERAPY PLUS...
     Route: 065
     Dates: start: 2020
  13. LEUCOVORIN [Suspect]
     Active Substance: LEUCOVORIN
     Indication: Rectal cancer recurrent
     Dosage: RECEIVED NINE CYCLES OF FLUOROURACIL, LEVOFOLINIC-ACID AND IRINOTECAN (FOLFIRI) CHEMOTHERAPY PLUS...
     Route: 065
     Dates: start: 2020

REACTIONS (4)
  - Infusion related reaction [Unknown]
  - Drug ineffective [Unknown]
  - Anastomotic leak [Recovering/Resolving]
  - Stoma site extravasation [Recovering/Resolving]

NARRATIVE: CASE EVENT DATE: 20200101
